FAERS Safety Report 15969427 (Version 2)
Quarter: 2019Q1

REPORT INFORMATION
  Report Type: Spontaneous
  Country: US (occurrence: US)
  Receive Date: 20190215
  Receipt Date: 20190330
  Transmission Date: 20190418
  Serious: No
  Sender: FDA-Public Use
  Company Number: PHEH2019US006639

PATIENT
  Sex: Female

DRUGS (2)
  1. LATANOPROST. [Concomitant]
     Active Substance: LATANOPROST
     Indication: PRODUCT USED FOR UNKNOWN INDICATION
     Route: 065
  2. DORZOLAMIDE+TIMOLOL [Suspect]
     Active Substance: DORZOLAMIDE\TIMOLOL
     Indication: EYE DISORDER
     Dosage: UNK
     Route: 047

REACTIONS (1)
  - Eye irritation [Unknown]
